FAERS Safety Report 5257749-0 (Version None)
Quarter: 2007Q1

REPORT INFORMATION
  Report Type: 
  Country: None (occurrence: None)
  Receive Date: 20070302
  Receipt Date: 20070220
  Transmission Date: 20070707
  Serious: Yes (Life-Threatening, Hospitalization)
  Sender: FDA-Public Use
  Company Number: GXKR2007GB01884

PATIENT
  Age: 75 Year
  Sex: Male
  Weight: 63 kg

DRUGS (9)
  1. SIMVASTATIN [Suspect]
     Indication: CARDIOVASCULAR EVENT PROPHYLAXIS
     Dosage: SEE IMAGE
     Route: 048
     Dates: start: 20050801, end: 20051001
  2. SIMVASTATIN [Suspect]
     Indication: CARDIOVASCULAR EVENT PROPHYLAXIS
     Dosage: SEE IMAGE
     Route: 048
     Dates: start: 20051001, end: 20060601
  3. AMIODARONE HCL [Concomitant]
  4. ASPIRIN [Concomitant]
  5. BISOPROLOL FUMARATE [Concomitant]
  6. FUROSEMIDE [Concomitant]
  7. GLYCERYL TRINITRATE (GLYCERYL TRINITRATE) [Concomitant]
  8. RAMIPRIL [Concomitant]
  9. SPIRONOLACTONE [Concomitant]

REACTIONS (3)
  - DYSPNOEA [None]
  - EXERCISE TOLERANCE DECREASED [None]
  - MYOSITIS [None]
